FAERS Safety Report 7903969-3 (Version None)
Quarter: 2011Q4

REPORT INFORMATION
  Report Type: 
  Country: None (occurrence: None)
  Receive Date: 20111109
  Receipt Date: 20111102
  Transmission Date: 20120403
  Serious: No
  Sender: FDA-Public Use
  Company Number: US-BAYER-2011-107502

PATIENT
  Age: 62 Year
  Sex: Male
  Weight: 77 kg

DRUGS (5)
  1. ALEVE (CAPLET) [Suspect]
     Indication: ARTHRITIS
     Dosage: 2 DF, BID
     Route: 048
     Dates: start: 20080101
  2. ALBUTEROL [Concomitant]
  3. ZANTAC [Concomitant]
  4. ADVAIR DISKUS 100/50 [Concomitant]
  5. THEOPHYLLINE [Concomitant]

REACTIONS (1)
  - NO ADVERSE EVENT [None]
